FAERS Safety Report 7577696-9 (Version None)
Quarter: 2011Q2

REPORT INFORMATION
  Report Type: 
  Country: None (occurrence: None)
  Receive Date: 20110628
  Receipt Date: 20110615
  Transmission Date: 20111010
  Serious: Yes (Hospitalization)
  Sender: FDA-Public Use
  Company Number: DE-CELGENEUS-062-21880-11040169

PATIENT
  Age: 55 Year
  Sex: Male
  Weight: 76 kg

DRUGS (11)
  1. METOPROLOL TARTRATE [Concomitant]
     Indication: ATRIAL FIBRILLATION
     Dosage: 47.5 MILLIGRAM
     Route: 048
     Dates: start: 20110303, end: 20110324
  2. DEXAMETHASONE [Suspect]
     Dosage: 40 MILLIGRAM
     Route: 048
     Dates: start: 20110422
  3. ADRIAMYCIN PFS [Suspect]
     Indication: MULTIPLE MYELOMA
     Dosage: 204 MG
     Route: 051
     Dates: start: 20110128
  4. ADRIAMYCIN PFS [Suspect]
     Dosage: 9 MILLIGRAM/SQ. METER
     Route: 051
     Dates: start: 20110422
  5. FLECAINIDE ACETATE [Concomitant]
     Indication: ATRIAL FIBRILLATION
     Dosage: 300 MILLIGRAM
     Route: 048
     Dates: start: 20110303, end: 20110324
  6. AMLODIPINE [Concomitant]
     Dosage: 5 MILLIGRAM
     Route: 048
  7. REVLIMID [Suspect]
     Dosage: 25 MILLIGRAM
     Route: 048
     Dates: start: 20110422
  8. COTRIM [Concomitant]
     Indication: PROPHYLAXIS
     Dosage: 960 MILLIGRAM
     Route: 048
  9. LEVOTHYROXINE SODIUM [Concomitant]
     Indication: HYPOTHYROIDISM
     Dosage: 100 MICROGRAM
     Route: 048
  10. REVLIMID [Suspect]
     Indication: MULTIPLE MYELOMA
     Dosage: 25 MILLIGRAM
     Route: 048
     Dates: start: 20110128
  11. DEXAMETHASONE [Suspect]
     Indication: MULTIPLE MYELOMA
     Dosage: 40 MILLIGRAM
     Route: 048
     Dates: start: 20110128

REACTIONS (1)
  - CARDIAC OUTPUT DECREASED [None]
